FAERS Safety Report 4390576-5 (Version None)
Quarter: 2004Q2

REPORT INFORMATION
  Report Type: 
  Country: None (occurrence: None)
  Receive Date: 20040630
  Receipt Date: 20040616
  Transmission Date: 20050107
  Serious: Yes (Disabling, Other)
  Sender: FDA-Public Use
  Company Number: SUS1-2004-00094

PATIENT
  Sex: Female

DRUGS (5)
  1. PROAMATINE [Suspect]
     Dosage: 5 MG 3 DIFFERENT TIMES
     Dates: start: 20030501, end: 20030501
  2. DONNATAL (ATROPINE SULFATE, HYOSCINE HYDROBROMIDE, HYOSCYAMINE SULFATE [Concomitant]
  3. PREDNISONE [Concomitant]
  4. SUDAFED S.A. [Concomitant]
  5. BENADRYL [Concomitant]

REACTIONS (3)
  - BLINDNESS UNILATERAL [None]
  - IATROGENIC INJURY [None]
  - MEDICATION ERROR [None]
